FAERS Safety Report 5590188-1 (Version None)
Quarter: 2007Q4

REPORT INFORMATION
  Report Type: 
  Country: None (occurrence: None)
  Receive Date: 20071217
  Receipt Date: 20070921
  Transmission Date: 20080405
  Serious: No
  Sender: FDA-Public Use
  Company Number: BDI-010200

PATIENT

DRUGS (1)
  1. MULTIHANCE [Suspect]
     Indication: SCAN WITH CONTRAST
     Dosage: 20 ML ONCE IV
     Route: 042
     Dates: start: 20070829, end: 20070829

REACTIONS (2)
  - NAUSEA [None]
  - VOMITING [None]
